FAERS Safety Report 25896515 (Version 7)
Quarter: 2025Q4

REPORT INFORMATION
  Report Type: Report from Study
  Country: EU (occurrence: EU)
  Receive Date: 20251008
  Receipt Date: 20251217
  Transmission Date: 20260117
  Serious: Yes (Hospitalization)
  Sender: TAKEDA
  Company Number: EU-TAKEDA-2024TUS118247

PATIENT
  Age: 48 Year
  Sex: Male

DRUGS (9)
  1. TEDUGLUTIDE [Suspect]
     Active Substance: TEDUGLUTIDE
     Indication: Short-bowel syndrome
     Dosage: 0.36 MILLILITER, QD
     Dates: start: 20241114
  2. TEDUGLUTIDE [Suspect]
     Active Substance: TEDUGLUTIDE
     Dosage: 0.3 MILLILITER, QD
  3. TEDUGLUTIDE [Suspect]
     Active Substance: TEDUGLUTIDE
     Dosage: 0.3 MILLILITER, QD
  4. TEDUGLUTIDE [Suspect]
     Active Substance: TEDUGLUTIDE
     Dosage: 0.38 MILLILITER, QD
  5. TEDUGLUTIDE [Suspect]
     Active Substance: TEDUGLUTIDE
     Dosage: 0.38 MILLILITER, QD
     Dates: start: 202411
  6. TEDUGLUTIDE [Suspect]
     Active Substance: TEDUGLUTIDE
     Dosage: 0.38 MILLILITER, QD
  7. SODIUM BUTYRATE [Suspect]
     Active Substance: SODIUM BUTYRATE
     Indication: Product used for unknown indication
     Dosage: UNK
  8. TROXERUTIN [Suspect]
     Active Substance: TROXERUTIN
     Indication: Product used for unknown indication
     Dosage: UNK
  9. FERROUS SULFATE [Concomitant]
     Active Substance: FERROUS SULFATE
     Dosage: 80 MILLIGRAM, QD

REACTIONS (28)
  - Haemorrhage [Recovered/Resolved]
  - Agitation [Recovering/Resolving]
  - Irritability [Recovering/Resolving]
  - Fatigue [Recovering/Resolving]
  - Mental fatigue [Recovering/Resolving]
  - General physical health deterioration [Recovering/Resolving]
  - Defaecation urgency [Not Recovered/Not Resolved]
  - Mucous stools [Not Recovered/Not Resolved]
  - Secretion discharge [Not Recovered/Not Resolved]
  - Stoma prolapse [Not Recovered/Not Resolved]
  - Stoma site oedema [Not Recovered/Not Resolved]
  - Pain in extremity [Recovering/Resolving]
  - Urticaria [Recovering/Resolving]
  - Product dose omission in error [Recovered/Resolved]
  - Iron deficiency [Recovering/Resolving]
  - Blister [Not Recovered/Not Resolved]
  - Haemorrhoids [Not Recovered/Not Resolved]
  - Anal inflammation [Not Recovered/Not Resolved]
  - Bowel movement irregularity [Recovering/Resolving]
  - Orchitis noninfective [Recovering/Resolving]
  - Abdominal distension [Not Recovered/Not Resolved]
  - Abdominal pain [Not Recovered/Not Resolved]
  - Nausea [Recovered/Resolved]
  - Frequent bowel movements [Unknown]
  - Testicular pain [Unknown]
  - Vitamin D deficiency [Recovering/Resolving]
  - Emotional distress [Unknown]
  - Inappropriate schedule of product administration [Recovering/Resolving]

NARRATIVE: CASE EVENT DATE: 20241124
